FAERS Safety Report 8096555-9 (Version None)
Quarter: 2012Q1

REPORT INFORMATION
  Report Type: 
  Country: None (occurrence: None)
  Receive Date: 20120129
  Receipt Date: 20111108
  Transmission Date: 20120608
  Serious: No
  Sender: FDA-Public Use
  Company Number: US-ABBOTT-11P-163-0872588-00

PATIENT
  Sex: Female
  Weight: 66.284 kg

DRUGS (5)
  1. SYNTHROID [Concomitant]
     Indication: HYPOTHYROIDISM
  2. PREMARIN [Concomitant]
     Indication: HORMONE REPLACEMENT THERAPY
  3. HUMIRA [Suspect]
     Indication: PSORIASIS
     Dates: start: 20110501
  4. HUMIRA [Suspect]
     Indication: RHEUMATOID ARTHRITIS
  5. ZOLOFT [Concomitant]
     Indication: DEPRESSION

REACTIONS (3)
  - CERVIX DISORDER [None]
  - FAECAL INCONTINENCE [None]
  - URINARY INCONTINENCE [None]
